FAERS Safety Report 6694515-3 (Version None)
Quarter: 2010Q2

REPORT INFORMATION
  Report Type: 
  Country: None (occurrence: None)
  Receive Date: 20100423
  Receipt Date: 20100413
  Transmission Date: 20101027
  Serious: Yes (Other)
  Sender: FDA-Public Use
  Company Number: GB-JNJFOC-20100404244

PATIENT
  Age: 65 Year
  Sex: Male
  Weight: 101 kg

DRUGS (5)
  1. REMICADE [Suspect]
     Indication: RHEUMATOID ARTHRITIS
     Route: 042
  2. METHOTREXATE [Concomitant]
  3. PREDNISOLONE [Concomitant]
  4. DIDRONEL [Concomitant]
  5. IBUPROFEN [Concomitant]

REACTIONS (1)
  - PROSTATE CANCER STAGE III [None]
